FAERS Safety Report 11965647 (Version 2)
Quarter: 2016Q1

REPORT INFORMATION
  Report Type: Spontaneous
  Country: US (occurrence: US)
  Receive Date: 20160127
  Receipt Date: 20160127
  Transmission Date: 20160526
  Serious: Yes (Other)
  Sender: FDA-Public Use
  Company Number: CHPA2016US000961

PATIENT
  Age: 69 Year
  Sex: Female

DRUGS (7)
  1. VOLTAREN [Suspect]
     Active Substance: DICLOFENAC SODIUM
     Indication: BACK PAIN
  2. VOLTAREN [Suspect]
     Active Substance: DICLOFENAC SODIUM
     Indication: MUSCLE SPASMS
  3. VOLTAREN [Suspect]
     Active Substance: DICLOFENAC SODIUM
     Indication: PAIN
     Dosage: UNK, BID
     Route: 065
  4. VOLTAREN [Suspect]
     Active Substance: DICLOFENAC SODIUM
     Indication: BACK DISORDER
  5. VOLTAREN [Suspect]
     Active Substance: DICLOFENAC SODIUM
     Indication: ARTHRALGIA
  6. VOLTAREN [Suspect]
     Active Substance: DICLOFENAC SODIUM
     Indication: ARTHRITIS
     Dosage: JUST PUT SOME ON FINGERS, BID
     Route: 061
     Dates: start: 2014
  7. VOLTAREN [Suspect]
     Active Substance: DICLOFENAC SODIUM
     Indication: SCIATIC NERVE INJURY

REACTIONS (12)
  - Muscle spasms [Unknown]
  - Arthritis [Unknown]
  - Therapeutic response unexpected [Unknown]
  - Drug administered at inappropriate site [Unknown]
  - Cervical spinal stenosis [Recovered/Resolved]
  - Back disorder [Recovered/Resolved]
  - Walking disability [Recovered/Resolved]
  - Inappropriate schedule of drug administration [Unknown]
  - Arthralgia [Unknown]
  - Sciatic nerve injury [Unknown]
  - Back pain [Recovered/Resolved]
  - Wrong technique in product usage process [Unknown]

NARRATIVE: CASE EVENT DATE: 2014
